FAERS Safety Report 6706377-6 (Version None)
Quarter: 2010Q2

REPORT INFORMATION
  Report Type: 
  Country: None (occurrence: None)
  Receive Date: 20100503
  Receipt Date: 20100420
  Transmission Date: 20101027
  Serious: Yes (Other)
  Sender: FDA-Public Use
  Company Number: PHHY2010FR25487

PATIENT
  Age: 81 Year
  Sex: Female

DRUGS (1)
  1. RASILEZ [Suspect]
     Dosage: 150 MG, UNK

REACTIONS (3)
  - CREATININE RENAL CLEARANCE DECREASED [None]
  - GAMMA-GLUTAMYLTRANSFERASE [None]
  - RENAL ARTERY STENOSIS [None]
